FAERS Safety Report 6592520-9 (Version None)
Quarter: 2010Q1

REPORT INFORMATION
  Report Type: 
  Country: None (occurrence: None)
  Receive Date: 20100221
  Receipt Date: 20091019
  Transmission Date: 20100710
  Serious: No
  Sender: FDA-Public Use
  Company Number: US-ALLERGAN-0914526US

PATIENT

DRUGS (2)
  1. BOTOX COSMETIC [Suspect]
     Indication: SKIN WRINKLING
     Dosage: 14 UNITS, UNK
     Dates: start: 20090901, end: 20090901
  2. BOTOX COSMETIC [Suspect]
     Dosage: 12 UNK, UNK
     Dates: start: 20091007, end: 20091007

REACTIONS (1)
  - EYE SWELLING [None]
